FAERS Safety Report 9927955 (Version 5)
Quarter: 2014Q4

REPORT INFORMATION
  Report Type: Spontaneous
  Country: US (occurrence: US)
  Receive Date: 20140227
  Receipt Date: 20141009
  Transmission Date: 20150529
  Serious: No
  Sender: FDA-Public Use
  Company Number: US-PFIZER INC-2014055013

PATIENT
  Age: 52 Year
  Sex: Male
  Weight: 91.61 kg

DRUGS (1)
  1. SUTENT [Suspect]
     Active Substance: SUNITINIB MALATE
     Indication: RENAL CANCER
     Dosage: 50 MG, 1X/DAY X 28 DAYS AND 2 WEEKS OFF
     Route: 048
     Dates: start: 20140123

REACTIONS (8)
  - Diarrhoea [Unknown]
  - Feeling hot [Unknown]
  - Pain in extremity [Unknown]
  - Stomatitis [Unknown]
  - Skin exfoliation [Unknown]
  - Skin lesion [Unknown]
  - Hypertension [Unknown]
  - Erythema [Unknown]

NARRATIVE: CASE EVENT DATE: 20140211
